FAERS Safety Report 17440782 (Version 1)
Quarter: 2020Q1

REPORT INFORMATION
  Report Type: Spontaneous
  Country: US (occurrence: US)
  Receive Date: 20200220
  Receipt Date: 20200220
  Transmission Date: 20200409
  Serious: Yes (Other)
  Sender: FDA-Public Use
  Company Number: None

PATIENT
  Age: 53 Year
  Sex: Female
  Weight: 64.35 kg

DRUGS (3)
  1. TYLENOL [Concomitant]
     Active Substance: ACETAMINOPHEN
  2. INTRAROSA [Suspect]
     Active Substance: PRASTERONE
     Indication: ABDOMINAL PAIN
     Dosage: ?          QUANTITY:1 INSERT SUPPOSITORY;?
     Route: 067
     Dates: start: 20200215, end: 20200219
  3. MULTI VITAMIN [Concomitant]
     Active Substance: VITAMINS

REACTIONS (4)
  - Lip swelling [None]
  - Pharyngeal swelling [None]
  - Abdominal pain [None]
  - Genital burning sensation [None]

NARRATIVE: CASE EVENT DATE: 20200219
